FAERS Safety Report 4951538-X (Version None)
Quarter: 2006Q1

REPORT INFORMATION
  Report Type: 
  Country: None (occurrence: None)
  Receive Date: 20060317
  Receipt Date: 20060304
  Transmission Date: 20060701
  Serious: Yes (Hospitalization, Disabling)
  Sender: FDA-Public Use
  Company Number: T06-CAN-00441-01

PATIENT
  Age: 71 Year
  Sex: Male
  Weight: 101.6057 kg

DRUGS (10)
  1. TIAZAC [Suspect]
     Indication: HYPERTENSION
     Dosage: 360 MG QD PO
     Route: 048
     Dates: start: 20060112
  2. DIGOXIN [Concomitant]
  3. TEMAZEPAM [Concomitant]
  4. AMILORIDE HCL AND HYDROCHLOROTHIAZIDE [Concomitant]
  5. ZAROXOLYN [Concomitant]
  6. LISINOPRIL [Concomitant]
  7. TERAZOSIN HCL [Concomitant]
  8. TAMOXIFEN CITRATE [Concomitant]
  9. COUMADIN [Concomitant]
  10. ASPIRIN [Concomitant]

REACTIONS (3)
  - BLINDNESS TRANSIENT [None]
  - CARDIAC ARREST [None]
  - IMPLANTABLE DEFIBRILLATOR INSERTION [None]
